FAERS Safety Report 5136847-6 (Version None)
Quarter: 2006Q4

REPORT INFORMATION
  Report Type: 
  Country: None (occurrence: None)
  Receive Date: 20061023
  Receipt Date: 20061005
  Transmission Date: 20070319
  Serious: Yes (Other)
  Sender: FDA-Public Use
  Company Number: PAR_0858_2006

PATIENT
  Age: 17 Year
  Sex: Male

DRUGS (1)
  1. RANITIDINE [Suspect]
     Indication: EPIGASTRIC DISCOMFORT
     Dosage: DF

REACTIONS (1)
  - DYSKINESIA [None]
